FAERS Safety Report 8140612-5 (Version None)
Quarter: 2012Q1

REPORT INFORMATION
  Report Type: 
  Country: None (occurrence: None)
  Receive Date: 20120213
  Receipt Date: 20120213
  Transmission Date: 20120608
  Serious: No
  Sender: FDA-Public Use
  Company Number: None

PATIENT
  Sex: Female

DRUGS (1)
  1. DEPAKOTE [Suspect]
     Dosage: 125 MG 5 CAPSULES 2 IN AM 1 IN PM AND 2.5 HS ORAL
     Route: 048
     Dates: start: 19930101

REACTIONS (1)
  - NO ADVERSE EVENT [None]
